FAERS Safety Report 16193460 (Version 1)
Quarter: 2019Q2

REPORT INFORMATION
  Report Type: Spontaneous
  Country: CA (occurrence: CA)
  Receive Date: 20190413
  Receipt Date: 20190413
  Transmission Date: 20190711
  Serious: Yes (Other)
  Sender: FDA-Public Use
  Company Number: CA-TEVA-2019-CA-1036633

PATIENT
  Sex: Male

DRUGS (8)
  1. PLAQUENIL [Suspect]
     Active Substance: HYDROXYCHLOROQUINE SULFATE
     Indication: RHEUMATOID ARTHRITIS
     Dosage: 400 MILLIGRAM DAILY;
     Route: 065
  2. FOLIC ACID. [Suspect]
     Active Substance: FOLIC ACID
     Indication: RHEUMATOID ARTHRITIS
     Route: 065
  3. NEXIUM [Suspect]
     Active Substance: ESOMEPRAZOLE MAGNESIUM
     Indication: RHEUMATOID ARTHRITIS
     Dosage: 40 MILLIGRAM DAILY;
     Route: 065
  4. GABAPENTIN. [Suspect]
     Active Substance: GABAPENTIN
     Indication: RHEUMATOID ARTHRITIS
     Route: 065
  5. METHOTREXATE. [Suspect]
     Active Substance: METHOTREXATE
     Indication: RHEUMATOID ARTHRITIS
     Route: 058
  6. PREDNISONE. [Suspect]
     Active Substance: PREDNISONE
     Indication: RHEUMATOID ARTHRITIS
     Dosage: 5 MILLIGRAM DAILY;
     Route: 065
  7. SULFASALAZINE. [Concomitant]
     Active Substance: SULFASALAZINE
  8. XELJANZ [Concomitant]
     Active Substance: TOFACITINIB CITRATE

REACTIONS (14)
  - Chest pain [Unknown]
  - Bursa removal [Unknown]
  - Rheumatoid arthritis [Unknown]
  - Drug ineffective [Unknown]
  - Arthrodesis [Unknown]
  - Neck pain [Unknown]
  - Nuclear magnetic resonance imaging abnormal [Unknown]
  - Pain in extremity [Unknown]
  - Aphonia [Unknown]
  - Arthralgia [Unknown]
  - Pain in jaw [Unknown]
  - Feeding disorder [Unknown]
  - Hand deformity [Unknown]
  - Product use in unapproved indication [Unknown]
